FAERS Safety Report 21739078 (Version 1)
Quarter: 2022Q4

REPORT INFORMATION
  Report Type: Spontaneous
  Country: MA (occurrence: MA)
  Receive Date: 20221216
  Receipt Date: 20221216
  Transmission Date: 20230113
  Serious: Yes (Hospitalization, Other)
  Sender: FDA-Public Use
  Company Number: MA-Accord-292176

PATIENT
  Age: 68 Year
  Sex: Female

DRUGS (1)
  1. METHOTREXATE [Suspect]
     Active Substance: METHOTREXATE
     Indication: Polyarthritis
     Dosage: PER WEEK TO 5 MG PER DAY

REACTIONS (4)
  - Pancytopenia [Recovering/Resolving]
  - Cardiotoxicity [Recovering/Resolving]
  - Overdose [Unknown]
  - Self-medication [Unknown]
